FAERS Safety Report 9350694 (Version 5)
Quarter: 2013Q3

REPORT INFORMATION
  Report Type: Spontaneous
  Country: DE (occurrence: DE)
  Receive Date: 20130617
  Receipt Date: 20130927
  Transmission Date: 20140515
  Serious: Yes (Hospitalization)
  Sender: FDA-Public Use
  Company Number: PHHY2013DE061002

PATIENT
  Age: 53 Year
  Sex: Female

DRUGS (2)
  1. SEQUIDOT [Suspect]
     Dosage: UNK UKN, UNK
     Route: 062
     Dates: start: 20101122, end: 20130531
  2. IBUPROFEN [Concomitant]
     Indication: MYALGIA
     Dosage: 600 MG, 1-3 TABLETS AS NEEDED
     Route: 048
     Dates: start: 200907, end: 201306

REACTIONS (5)
  - Muscular weakness [Not Recovered/Not Resolved]
  - Tendon rupture [Not Recovered/Not Resolved]
  - Epistaxis [Not Recovered/Not Resolved]
  - Night sweats [Not Recovered/Not Resolved]
  - Hot flush [Not Recovered/Not Resolved]
